FAERS Safety Report 9710592 (Version 1)
Quarter: 2013Q4

REPORT INFORMATION
  Report Type: Spontaneous
  Country: US (occurrence: US)
  Receive Date: 20131126
  Receipt Date: 20131126
  Transmission Date: 20140711
  Serious: No
  Sender: FDA-Public Use
  Company Number: US-BRISTOL-MYERS SQUIBB COMPANY-18925032

PATIENT
  Sex: Female

DRUGS (3)
  1. BYETTA [Suspect]
  2. ACTOS [Suspect]
  3. JANUVIA [Suspect]

REACTIONS (1)
  - Drug ineffective [Unknown]
